FAERS Safety Report 7547345-4 (Version None)
Quarter: 2011Q2

REPORT INFORMATION
  Report Type: 
  Country: None (occurrence: None)
  Receive Date: 20110614
  Receipt Date: 20110531
  Transmission Date: 20111010
  Serious: Yes (Hospitalization, Other)
  Sender: FDA-Public Use
  Company Number: US-ELI_LILLY_AND_COMPANY-US201103008531

PATIENT
  Age: 77 Year
  Sex: Female
  Weight: 45.351 kg

DRUGS (1)
  1. FORTEO [Suspect]
     Dosage: 20 UG, QD
     Route: 058
     Dates: start: 20100610

REACTIONS (5)
  - FALL [None]
  - UPPER LIMB FRACTURE [None]
  - PAIN [None]
  - OSTEOPOROSIS POSTMENOPAUSAL [None]
  - HIP FRACTURE [None]
